FAERS Safety Report 9664652 (Version 1)
Quarter: 2013Q4

REPORT INFORMATION
  Report Type: Spontaneous
  Country: US (occurrence: None)
  Receive Date: 20131031
  Receipt Date: 20131031
  Transmission Date: 20140711
  Serious: Yes (Other)
  Sender: FDA-Public Use
  Company Number: None

PATIENT
  Age: 35 Year
  Sex: Female
  Weight: 77.11 kg

DRUGS (1)
  1. PROVIGIL [Suspect]
     Indication: ATTENTION DEFICIT/HYPERACTIVITY DISORDER
     Dosage: 1 PILL ONCE DAILY TAKEN BY MOUTH
     Dates: start: 20020315, end: 20020415

REACTIONS (4)
  - Off label use [None]
  - Impulsive behaviour [None]
  - Gambling [None]
  - Confusional state [None]
